FAERS Safety Report 13192061 (Version 3)
Quarter: 2017Q1

REPORT INFORMATION
  Report Type: Spontaneous
  Country: US (occurrence: US)
  Receive Date: 20170207
  Receipt Date: 20170330
  Transmission Date: 20170428
  Serious: No
  Sender: FDA-Public Use
  Company Number: US-PFIZER INC-2017051244

PATIENT
  Age: 64 Year
  Sex: Female

DRUGS (2)
  1. CELECOXIB. [Suspect]
     Active Substance: CELECOXIB
     Indication: PAIN
     Dosage: 200 MG, UNK
  2. CELECOXIB. [Suspect]
     Active Substance: CELECOXIB
     Indication: MUSCULOSKELETAL STIFFNESS

REACTIONS (1)
  - Drug ineffective [Unknown]
